FAERS Safety Report 7120922-0 (Version None)
Quarter: 2010Q4

REPORT INFORMATION
  Report Type: 
  Country: None (occurrence: None)
  Receive Date: 20101124
  Receipt Date: 20101116
  Transmission Date: 20110411
  Serious: Yes (Other)
  Sender: FDA-Public Use
  Company Number: US-US-EMD SERONO, INC.-7028266

PATIENT
  Sex: Female

DRUGS (5)
  1. REBIF [Suspect]
     Indication: MULTIPLE SCLEROSIS
     Route: 058
     Dates: start: 20080901, end: 20090301
  2. REBIF [Suspect]
     Route: 058
     Dates: start: 20090717
  3. IMURAN [Concomitant]
     Indication: RHEUMATOID ARTHRITIS
  4. VOLTAREN [Concomitant]
     Indication: RHEUMATOID ARTHRITIS
  5. UNSPECIFIED MEDICATIONS [Concomitant]

REACTIONS (4)
  - DEPRESSION [None]
  - INJECTION SITE ERYTHEMA [None]
  - INJECTION SITE PAIN [None]
  - SUICIDAL IDEATION [None]
